FAERS Safety Report 4531236-7 (Version None)
Quarter: 2004Q4

REPORT INFORMATION
  Report Type: 
  Country: None (occurrence: None)
  Receive Date: 20041126
  Receipt Date: 20031003
  Transmission Date: 20050328
  Serious: Yes (Hospitalization)
  Sender: FDA-Public Use
  Company Number: HQWYE054707OCT03

PATIENT
  Age: 44 Year
  Sex: Female
  Weight: 92.16 kg

DRUGS (4)
  1. TRIPHASIL-28 [Suspect]
     Indication: DYSMENORRHOEA
     Dosage: 1 TABLET DAILY, ORAL
     Route: 048
     Dates: start: 19910101, end: 20030819
  2. PRILOSEC [Concomitant]
  3. GUAIPHENESIN (GUAIFENESIN) [Concomitant]
  4. ESTRACE [Concomitant]

REACTIONS (3)
  - BRONCHITIS [None]
  - DEEP VEIN THROMBOSIS [None]
  - PULMONARY EMBOLISM [None]
